FAERS Safety Report 6070433-9 (Version None)
Quarter: 2009Q1

REPORT INFORMATION
  Report Type: 
  Country: None (occurrence: None)
  Receive Date: 20090209
  Receipt Date: 20090205
  Transmission Date: 20090719
  Serious: Yes (Death, Hospitalization, Other)
  Sender: FDA-Public Use
  Company Number: PHEH2006US11053

PATIENT
  Sex: Male
  Weight: 68.027 kg

DRUGS (15)
  1. EXJADE [Suspect]
     Indication: IRON OVERLOAD
     Dosage: 1500MG - 2000MG
     Route: 048
     Dates: start: 20051201, end: 20060801
  2. EXJADE [Suspect]
     Dosage: 1250 MG, QD
     Route: 048
     Dates: start: 20060110
  3. REVLIMID [Suspect]
     Indication: MYELODYSPLASTIC SYNDROME
     Dosage: 10 MG, QD
     Route: 048
     Dates: start: 20060601
  4. TRANSFUSIONS [Suspect]
     Route: 042
  5. AMIODARONE [Concomitant]
     Dosage: 200 MG, THREE DAYS/WEEK
  6. COREG [Concomitant]
     Dosage: 12.5 MG BID
  7. BUMEX [Concomitant]
     Dosage: .1 MG, QD
  8. POTASSIUM CHLORIDE [Concomitant]
     Dosage: 20 MEQ, QD
  9. DIGOXIN [Concomitant]
     Dosage: 0.125 MG, QOD
  10. FOLIC ACID [Concomitant]
     Dosage: 800 MG, QD
  11. ASPIRIN [Concomitant]
     Dosage: 81 MG, QD
  12. MULTI-VITAMIN [Concomitant]
     Dosage: 1 UNK, QD
  13. NEXIUM [Concomitant]
     Dosage: 40 MG, QD
  14. TRAZODONE HCL [Concomitant]
     Dosage: 50 MG, QHS
  15. B12 ^RECIP^ [Concomitant]
     Dosage: 1000 MCG

REACTIONS (30)
  - ALANINE AMINOTRANSFERASE INCREASED [None]
  - ASPIRATION PLEURAL CAVITY [None]
  - ASTHENIA [None]
  - ATRIAL FIBRILLATION [None]
  - BLOOD CREATININE INCREASED [None]
  - BLOOD IRON INCREASED [None]
  - BLOOD UREA INCREASED [None]
  - CARDIAC FAILURE CONGESTIVE [None]
  - CARDIOMYOPATHY [None]
  - DECREASED APPETITE [None]
  - DEHYDRATION [None]
  - DIARRHOEA [None]
  - FAILURE TO THRIVE [None]
  - FATIGUE [None]
  - HAEMATOCRIT DECREASED [None]
  - HAEMOCHROMATOSIS [None]
  - HAEMODIALYSIS [None]
  - HAEMOGLOBIN DECREASED [None]
  - HYPOVOLAEMIA [None]
  - NAUSEA [None]
  - PLATELET COUNT DECREASED [None]
  - PLEURAL EFFUSION [None]
  - PNEUMONIA [None]
  - RENAL FAILURE ACUTE [None]
  - SERUM FERRITIN INCREASED [None]
  - TACHYCARDIA [None]
  - TRANSFERRIN SATURATION INCREASED [None]
  - URINE OUTPUT DECREASED [None]
  - VOMITING [None]
  - WHITE BLOOD CELL COUNT INCREASED [None]
